FAERS Safety Report 18126991 (Version 1)
Quarter: 2020Q3

REPORT INFORMATION
  Report Type: Spontaneous
  Country: CN (occurrence: CN)
  Receive Date: 20200810
  Receipt Date: 20200810
  Transmission Date: 20201103
  Serious: Yes (Life-Threatening, Other)
  Sender: FDA-Public Use
  Company Number: CN-JNJFOC-20200810724

PATIENT
  Age: 65 Year
  Sex: Female
  Weight: 70 kg

DRUGS (7)
  1. CETIRIZINE HYDROCHLORIDE. [Suspect]
     Active Substance: CETIRIZINE HYDROCHLORIDE
     Indication: HYPERSENSITIVITY
     Dosage: 10 MILLIGRAM, ONCE DAILY (QD)
     Route: 048
  2. DYNASTAT [Suspect]
     Active Substance: PARECOXIB SODIUM
     Indication: ANALGESIC THERAPY
     Dosage: 40 MILLIGRAM, ONCE DAILY (QD)
     Route: 041
     Dates: start: 20200720, end: 20200720
  3. SODIUM CHLORIDE. [Concomitant]
     Active Substance: SODIUM CHLORIDE
     Indication: SOLVENT SENSITIVITY
     Dosage: 100 MILLILITER, ONCE DAILY (QD)
     Route: 041
     Dates: start: 20200720, end: 20200720
  4. DEXAMETHASONE. [Concomitant]
     Active Substance: DEXAMETHASONE
     Indication: HYPERSENSITIVITY
     Route: 065
  5. ROCEPHIN [Suspect]
     Active Substance: CEFTRIAXONE SODIUM
     Indication: ANAL INFLAMMATION
     Dosage: 2 GRAM, ONCE DAILY (QD)
     Route: 041
     Dates: start: 20200720, end: 20200720
  6. ORNIDAZOLE W/SODIUM CHLORIDE [Suspect]
     Active Substance: ORNIDAZOLE
     Indication: ANAL INFLAMMATION
     Dosage: 0.5 GRAM, 2X/DAY (BID)
     Route: 041
     Dates: start: 20200720, end: 20200720
  7. CHLORPHENIRAMINE. [Concomitant]
     Active Substance: CHLORPHENIRAMINE
     Indication: HYPERSENSITIVITY
     Route: 065

REACTIONS (1)
  - Epidermolysis bullosa [Recovering/Resolving]

NARRATIVE: CASE EVENT DATE: 20200720
